FAERS Safety Report 20669435 (Version 1)
Quarter: 2022Q2

REPORT INFORMATION
  Report Type: Spontaneous
  Country: US (occurrence: None)
  Receive Date: 20220402
  Receipt Date: 20220402
  Transmission Date: 20220721
  Serious: Yes (Disabling, Other)
  Sender: FDA-Public Use
  Company Number: None

PATIENT
  Age: 38 Year
  Sex: Male
  Weight: 61.65 kg

DRUGS (3)
  1. FINASTERIDE\MINOXIDIL [Suspect]
     Active Substance: FINASTERIDE\MINOXIDIL
     Indication: Androgenetic alopecia
     Dosage: OTHER QUANTITY : 4 SPRAY(S);?FREQUENCY : DAILY;?
     Route: 061
     Dates: start: 20220310, end: 20220316
  2. Men^s Vitamins [Concomitant]
  3. MINOXIDIL [Concomitant]
     Active Substance: MINOXIDIL

REACTIONS (8)
  - Sleep disorder [None]
  - Testicular pain [None]
  - Headache [None]
  - Back pain [None]
  - Erectile dysfunction [None]
  - Orgasm abnormal [None]
  - Ejaculation disorder [None]
  - Sexual dysfunction [None]

NARRATIVE: CASE EVENT DATE: 20220312
